FAERS Safety Report 25515647 (Version 1)
Quarter: 2025Q3

REPORT INFORMATION
  Report Type: Spontaneous
  Country: EU (occurrence: EU)
  Receive Date: 20250704
  Receipt Date: 20250704
  Transmission Date: 20251020
  Serious: Yes (Other)
  Sender: SANDOZ
  Company Number: EU-NOVPHSZ-PHHY2017DE202340

PATIENT

DRUGS (3)
  1. CYCLOPHOSPHAMIDE [Suspect]
     Active Substance: CYCLOPHOSPHAMIDE
     Indication: Lymphadenopathy
     Route: 065
     Dates: start: 201506
  2. FLUDARABINE [Suspect]
     Active Substance: FLUDARABINE PHOSPHATE
     Indication: Lymphadenopathy
     Route: 065
     Dates: start: 201506
  3. RITUXIMAB [Concomitant]
     Active Substance: RITUXIMAB
     Indication: Lymphadenopathy
     Route: 065

REACTIONS (1)
  - Hepatitis E [Recovering/Resolving]
